FAERS Safety Report 8935241 (Version 1)
Quarter: 2012Q4

REPORT INFORMATION
  Report Type: 
  Country: DE (occurrence: DE)
  Receive Date: 20121129
  Receipt Date: 20121129
  Transmission Date: 20130627
  Serious: Yes (Other)
  Sender: FDA-Public Use
  Company Number: GXKR2012DE003626

PATIENT
  Age: 27 Year
  Sex: Female
  Weight: 98 kg

DRUGS (2)
  1. LAMOTRIGINE [Suspect]
     Indication: EPILEPSY
     Dosage: 200 mg, QD
     Route: 048
  2. FOLSAN [Concomitant]
     Indication: PROPHYLAXIS OF NEURAL TUBE DEFECT
     Route: 048

REACTIONS (4)
  - Gestational diabetes [Unknown]
  - Pre-eclampsia [Unknown]
  - Polyhydramnios [Unknown]
  - Exposure during pregnancy [Unknown]
